FAERS Safety Report 10056623 (Version 1)
Quarter: 2014Q2

REPORT INFORMATION
  Report Type: Spontaneous
  Country: US (occurrence: US)
  Receive Date: 20140403
  Receipt Date: 20140403
  Transmission Date: 20141212
  Serious: Yes (Hospitalization)
  Sender: FDA-Public Use
  Company Number: US-BAYER-2014-049078

PATIENT
  Age: 47 Year
  Sex: Female

DRUGS (6)
  1. YAZ [Suspect]
     Dosage: UNK
     Dates: start: 20090306, end: 20090317
  2. DILAUDID [Concomitant]
     Indication: HEADACHE
     Dosage: 1 MG, UNK
     Dates: start: 20090506
  3. REGLAN [Concomitant]
     Indication: NAUSEA
     Dosage: 10 MG, UNK
     Route: 042
     Dates: start: 20090506
  4. NASONEX [Concomitant]
     Dosage: 50 MCG
     Route: 048
     Dates: start: 20090302
  5. EFFEXOR XR [Concomitant]
     Dosage: 75 MG, UNK
     Route: 048
  6. OMEPRAZOLE [Concomitant]
     Dosage: 20 MG, UNK
     Route: 048

REACTIONS (1)
  - Deep vein thrombosis [Recovered/Resolved]
